FAERS Safety Report 7137247-X (Version None)
Quarter: 2010Q4

REPORT INFORMATION
  Report Type: 
  Country: None (occurrence: None)
  Receive Date: 20101206
  Receipt Date: 20101125
  Transmission Date: 20110411
  Serious: Yes (Other)
  Sender: FDA-Public Use
  Company Number: BR-US-EMD SERONO, INC.-7029787

PATIENT
  Sex: Female

DRUGS (8)
  1. REBIF [Suspect]
     Indication: RELAPSING-REMITTING MULTIPLE SCLEROSIS
     Route: 058
     Dates: start: 20060424
  2. HYDROCHLOROTHIAZIDE [Concomitant]
  3. SYNTHROID [Concomitant]
  4. PARIET [Concomitant]
  5. MOTILIUM [Concomitant]
  6. SERTRALINE HYDROCHLORIDE [Concomitant]
  7. AMYTRIL [Concomitant]
  8. ICTUX [Concomitant]

REACTIONS (3)
  - COUGH [None]
  - OESOPHAGEAL ULCER [None]
  - ORAL CANDIDIASIS [None]
